FAERS Safety Report 5236297-8 (Version None)
Quarter: 2007Q1

REPORT INFORMATION
  Report Type: 
  Country: None (occurrence: None)
  Receive Date: 20070212
  Receipt Date: 20070131
  Transmission Date: 20070707
  Serious: Yes (Life-Threatening, Hospitalization, Other)
  Sender: FDA-Public Use
  Company Number: DE-PFIZER INC-2007005088

PATIENT
  Sex: Female
  Weight: 58 kg

DRUGS (2)
  1. SUTENT [Suspect]
     Indication: NEUROENDOCRINE TUMOUR
     Dosage: DAILY DOSE:37.5MG
     Route: 048
     Dates: start: 20061207, end: 20061221
  2. IBANDRONATE SODIUM [Concomitant]
     Route: 042

REACTIONS (1)
  - PERICARDIAL EFFUSION [None]
